FAERS Safety Report 24172073 (Version 1)
Quarter: 2024Q3

REPORT INFORMATION
  Report Type: Spontaneous
  Country: FR (occurrence: FR)
  Receive Date: 20240805
  Receipt Date: 20240805
  Transmission Date: 20241017
  Serious: Yes (Life-Threatening, Hospitalization, Other)
  Sender: NOVO NORDISK
  Company Number: FR-NOVOPROD-1262746

PATIENT
  Sex: Female

DRUGS (2)
  1. OZEMPIC [Suspect]
     Active Substance: SEMAGLUTIDE
     Indication: Product used for unknown indication
     Dosage: 0.25 MG
     Dates: start: 202309
  2. OZEMPIC [Suspect]
     Active Substance: SEMAGLUTIDE
     Dosage: 0.5 MG

REACTIONS (12)
  - Gastrointestinal pain [Unknown]
  - Transient ischaemic attack [Unknown]
  - Paralysis [Unknown]
  - Depression [Unknown]
  - Feeding disorder [Unknown]
  - Abdominal pain upper [Unknown]
  - Constipation [Unknown]
  - Thyroid disorder [Unknown]
  - Weight increased [Unknown]
  - Weight decreased [Unknown]
  - Blood glucose abnormal [Unknown]
  - Wrong technique in product usage process [Unknown]
